FAERS Safety Report 11641037 (Version 3)
Quarter: 2015Q4

REPORT INFORMATION
  Report Type: Report from Study
  Country: KR (occurrence: KR)
  Receive Date: 20151019
  Receipt Date: 20151119
  Transmission Date: 20160304
  Serious: Yes (Hospitalization, Other)
  Sender: FDA-Public Use
  Company Number: KR-BAYER-2015-290270

PATIENT
  Age: 67 Year
  Sex: Male

DRUGS (1)
  1. NEXAVAR [Suspect]
     Active Substance: SORAFENIB
     Indication: HEPATOCELLULAR CARCINOMA
     Dosage: 400 MG, BID
     Route: 048
     Dates: start: 20150522

REACTIONS (11)
  - Erythema [Recovered/Resolved]
  - Blister [Recovered/Resolved]
  - Diarrhoea [Not Recovered/Not Resolved]
  - Subcutaneous abscess [Not Recovered/Not Resolved]
  - Pain of skin [None]
  - Pain in extremity [None]
  - Alopecia [None]
  - Drug ineffective [None]
  - Renal impairment [None]
  - Hepatocellular carcinoma [None]
  - Urticaria [Recovered/Resolved]

NARRATIVE: CASE EVENT DATE: 201505
